FAERS Safety Report 11758109 (Version 1)
Quarter: 2015Q4

REPORT INFORMATION
  Report Type: Report from Study
  Country: US (occurrence: None)
  Receive Date: 20151117
  Receipt Date: 20151117
  Transmission Date: 20160304
  Serious: Yes (Hospitalization, Other)
  Sender: FDA-Public Use
  Company Number: 2014US009971

PATIENT
  Age: 38 Year
  Sex: Female
  Weight: 98.6 kg

DRUGS (2)
  1. GLASSIA [Suspect]
     Active Substance: .ALPHA.1-PROTEINASE INHIBITOR HUMAN
     Indication: ALPHA-1 ANTI-TRYPSIN DEFICIENCY
     Route: 042
     Dates: start: 2011
  2. ARALAST [Suspect]
     Active Substance: .ALPHA.1-PROTEINASE INHIBITOR HUMAN
     Indication: ALPHA-1 ANTI-TRYPSIN DEFICIENCY
     Dosage: UNK UNK, 1/WEEK, INTRAVENOUS
     Route: 042
     Dates: start: 200512, end: 2011

REACTIONS (6)
  - Emotional disorder [None]
  - Anxiety disorder [None]
  - Aggression [None]
  - Chronic obstructive pulmonary disease [None]
  - Lethargy [None]
  - Pneumonia [None]

NARRATIVE: CASE EVENT DATE: 201411
